FAERS Safety Report 11695457 (Version 1)
Quarter: 2015Q4

REPORT INFORMATION
  Report Type: Spontaneous
  Country: US (occurrence: US)
  Receive Date: 20151104
  Receipt Date: 20151104
  Transmission Date: 20160304
  Serious: No
  Sender: FDA-Public Use
  Company Number: US-ELI_LILLY_AND_COMPANY-US201511000600

PATIENT
  Age: 73 Year
  Sex: Male

DRUGS (4)
  1. FORTEO [Suspect]
     Active Substance: TERIPARATIDE
     Indication: OSTEOPENIA
     Dosage: UNK, QD
     Route: 065
     Dates: start: 20151010
  2. FORTEO [Suspect]
     Active Substance: TERIPARATIDE
     Indication: FALL
  3. FORTEO [Suspect]
     Active Substance: TERIPARATIDE
     Indication: SPINAL FRACTURE
  4. FORTEO [Suspect]
     Active Substance: TERIPARATIDE
     Indication: PROPHYLAXIS

REACTIONS (3)
  - Underdose [Recovered/Resolved]
  - Injury associated with device [Recovered/Resolved]
  - Off label use [Unknown]

NARRATIVE: CASE EVENT DATE: 201510
